FAERS Safety Report 4983976-3 (Version None)
Quarter: 2006Q2

REPORT INFORMATION
  Report Type: 
  Country: None (occurrence: None)
  Receive Date: 20060426
  Receipt Date: 20051027
  Transmission Date: 20061013
  Serious: Yes (Hospitalization, Disabling)
  Sender: FDA-Public Use
  Company Number: NO-MERCK-0510NOR00057

PATIENT
  Age: 78 Year
  Sex: Male

DRUGS (7)
  1. ATORVASTATIN CALCIUM [Suspect]
     Indication: HYPERCHOLESTEROLAEMIA
     Route: 048
     Dates: start: 20021001, end: 20030601
  2. ASPIRIN AND MAGNESIUM OXIDE [Suspect]
     Indication: CORONARY ARTERY DISEASE
     Route: 048
     Dates: start: 20021002, end: 20030601
  3. CARVEDILOL [Suspect]
     Indication: HYPERTENSION
     Route: 048
     Dates: start: 20021002, end: 20030724
  4. CARVEDILOL [Suspect]
     Route: 048
     Dates: start: 20030725, end: 20040913
  5. COZAAR [Suspect]
     Indication: HYPERTENSION
     Route: 048
     Dates: start: 20030221, end: 20030605
  6. COZAAR [Suspect]
     Route: 048
     Dates: start: 20030610, end: 20030601
  7. NITROGLYCERIN [Concomitant]
     Route: 048

REACTIONS (7)
  - CHOLELITHIASIS [None]
  - DECREASED APPETITE [None]
  - HEPATIC CIRRHOSIS [None]
  - HEPATIC ENZYME INCREASED [None]
  - NAUSEA [None]
  - PANCREATIC INSUFFICIENCY [None]
  - WEIGHT DECREASED [None]
